FAERS Safety Report 4948416-9 (Version None)
Quarter: 2006Q1

REPORT INFORMATION
  Report Type: 
  Country: None (occurrence: None)
  Receive Date: 20060313
  Receipt Date: 20060225
  Transmission Date: 20060701
  Serious: Yes (Hospitalization)
  Sender: FDA-Public Use
  Company Number: PAR_0543_2006

PATIENT
  Age: 24 Month
  Sex: Female
  Weight: 13 kg

DRUGS (4)
  1. ISOPTIN [Suspect]
     Indication: ACCIDENTAL EXPOSURE
     Dosage: 1 TAB ONCE; PO
     Route: 048
     Dates: start: 20060225, end: 20060225
  2. FORTZAAR [Suspect]
     Indication: ACCIDENTAL EXPOSURE
     Dosage: 1 TAB ONCE; PO
     Route: 048
     Dates: start: 20060225, end: 20060225
  3. LOSARTAN POTASSIUM [Suspect]
     Indication: ACCIDENTAL EXPOSURE
     Dosage: 50 MG ONCE; PO
     Route: 048
     Dates: start: 20060225, end: 20060225
  4. LORZAAR [Suspect]
     Indication: ACCIDENTAL EXPOSURE
     Dosage: 1 TAB ONCE; PO
     Route: 048
     Dates: start: 20060225, end: 20060225

REACTIONS (1)
  - ACCIDENTAL DRUG INTAKE BY CHILD [None]
